FAERS Safety Report 6739456-8 (Version None)
Quarter: 2010Q2

REPORT INFORMATION
  Report Type: 
  Country: None (occurrence: None)
  Receive Date: 20100525
  Receipt Date: 20100513
  Transmission Date: 20101027
  Serious: Yes (Death, Hospitalization, Other)
  Sender: FDA-Public Use
  Company Number: US-GENZYME-THYM-1001349

PATIENT
  Sex: Male
  Weight: 50.3 kg

DRUGS (8)
  1. THYMOGLOBULIN [Suspect]
     Indication: PROPHYLAXIS AGAINST TRANSPLANT REJECTION
     Dosage: 75 MG, UNK
     Route: 042
     Dates: start: 20100106, end: 20100112
  2. VELCADE [Concomitant]
     Indication: PROPHYLAXIS AGAINST TRANSPLANT REJECTION
     Dosage: 2.2 MG, UNK
     Route: 042
     Dates: start: 20100106, end: 20100116
  3. RITUXAN [Concomitant]
     Indication: PROPHYLAXIS AGAINST TRANSPLANT REJECTION
     Dosage: 200 MG, ONCE
     Route: 042
     Dates: start: 20100107, end: 20100107
  4. KEPPRA [Concomitant]
     Indication: CONVULSION
  5. CORTICOSTEROID NOS [Concomitant]
     Indication: IMMUNOSUPPRESSION
  6. HEPARIN [Concomitant]
     Indication: ANTICOAGULANT THERAPY
  7. ASPIRIN [Concomitant]
     Indication: DRUG USE FOR UNKNOWN INDICATION
  8. ANTIBIOTICS [Concomitant]
     Indication: ANTIBIOTIC THERAPY
     Dosage: UNK

REACTIONS (6)
  - ASCITES [None]
  - COMPLICATIONS OF TRANSPLANTED KIDNEY [None]
  - LEUKOCYTOSIS [None]
  - MESENTERIC ARTERY THROMBOSIS [None]
  - RENAL ARTERY THROMBOSIS [None]
  - SPINAL CORD ISCHAEMIA [None]
